FAERS Safety Report 7126575-X (Version None)
Quarter: 2010Q4

REPORT INFORMATION
  Report Type: 
  Country: None (occurrence: None)
  Receive Date: 20101129
  Receipt Date: 20101123
  Transmission Date: 20110411
  Serious: Yes (Death)
  Sender: FDA-Public Use
  Company Number: EC-ROCHE-743835

PATIENT
  Sex: Male
  Weight: 56.2 kg

DRUGS (1)
  1. XELODA [Suspect]
     Indication: COLORECTAL CANCER
     Route: 048
     Dates: start: 20100213

REACTIONS (1)
  - MALIGNANT NEOPLASM PROGRESSION [None]
